FAERS Safety Report 8115448-1 (Version None)
Quarter: 2012Q1

REPORT INFORMATION
  Report Type: 
  Country: None (occurrence: None)
  Receive Date: 20120206
  Receipt Date: 20120203
  Transmission Date: 20120608
  Serious: Yes (Other)
  Sender: FDA-Public Use
  Company Number: US-PFIZER INC-2011133205

PATIENT
  Sex: Female
  Weight: 136.5 kg

DRUGS (5)
  1. EFFEXOR XR [Suspect]
     Indication: ANXIETY
     Dosage: 150 MG, 1X/DAY
     Route: 048
     Dates: start: 20020101, end: 20090101
  2. VENLAFAXINE HCL [Suspect]
     Indication: DEPRESSION
     Dosage: 37.5 MG, 2X/DAY
     Route: 048
     Dates: start: 20090301
  3. VENLAFAXINE HCL [Suspect]
     Dosage: UNK
  4. EFFEXOR XR [Suspect]
     Indication: DEPRESSION
     Dosage: UNK
  5. VENLAFAXINE HCL [Suspect]
     Indication: ANXIETY

REACTIONS (6)
  - ABDOMINAL DISCOMFORT [None]
  - AFFECT LABILITY [None]
  - GASTRIC DISORDER [None]
  - OSTEOARTHRITIS [None]
  - MENTAL DISORDER [None]
  - CONFUSIONAL STATE [None]
